FAERS Safety Report 7121088-3 (Version None)
Quarter: 2010Q4

REPORT INFORMATION
  Report Type: 
  Country: None (occurrence: None)
  Receive Date: 20101124
  Receipt Date: 20101119
  Transmission Date: 20110411
  Serious: Yes (Life-Threatening, Hospitalization, Disabling)
  Sender: FDA-Public Use
  Company Number: FI-SANOFI-AVENTIS-2010SA070438

PATIENT
  Age: 71 Year
  Sex: Female

DRUGS (9)
  1. OXALIPLATIN [Suspect]
     Indication: COLON CANCER
     Route: 042
     Dates: start: 20091217, end: 20100924
  2. AVASTIN [Suspect]
     Indication: COLON CANCER
     Route: 042
     Dates: start: 20091217, end: 20100924
  3. XELODA [Suspect]
     Indication: COLON CANCER
     Route: 048
     Dates: start: 20091217, end: 20100924
  4. PANADOL [Concomitant]
  5. TRAMADOL HCL [Concomitant]
  6. GRANISETRON HCL [Concomitant]
  7. PRIMPERAN [Concomitant]
  8. ZOPINOX [Concomitant]
  9. IMOVANE [Concomitant]

REACTIONS (3)
  - CONFUSIONAL STATE [None]
  - MEMORY IMPAIRMENT [None]
  - PROGRESSIVE MULTIFOCAL LEUKOENCEPHALOPATHY [None]
